FAERS Safety Report 12796732 (Version 1)
Quarter: 2016Q3

REPORT INFORMATION
  Report Type: Spontaneous
  Country: US (occurrence: US)
  Receive Date: 20160929
  Receipt Date: 20160929
  Transmission Date: 20161109
  Serious: No
  Sender: FDA-Public Use
  Company Number: US-PFIZER INC-3036335

PATIENT
  Age: 63 Year
  Sex: Female
  Weight: 72.57 kg

DRUGS (5)
  1. T3 [Concomitant]
     Active Substance: LIOTHYRONINE SODIUM
     Indication: POST PROCEDURAL HYPOTHYROIDISM
     Dosage: 50 MG, FREQ: 1 DAY; INTERVAL: 1
     Route: 048
  2. T4 [Concomitant]
     Active Substance: LEVOTHYROXINE
     Indication: POST PROCEDURAL HYPOTHYROIDISM
     Dosage: 50 MG, FREQ: 1 DAY; INTERVAL: 1
     Route: 048
  3. SODIUM BICARBONATE. [Suspect]
     Active Substance: SODIUM BICARBONATE
     Indication: CYSTITIS INTERSTITIAL
     Dosage: 5 ML, ATLEAST QD, INSTILLED THE SOLUTION VIA URINARY CATHETER INTO THE BLADDER, FREQ: AS NECESSARY
     Route: 066
  4. BUPIVACAINE HCL [Suspect]
     Active Substance: BUPIVACAINE HYDROCHLORIDE
     Indication: CYSTITIS INTERSTITIAL
     Dosage: 10 ML, ATLEAST QD, INSTILLED THE SOLUTION VIA URINARY CATHETER INTO THE BLADDER, FREQ: AS NECESSARY
     Route: 066
  5. HEPARIN [Suspect]
     Active Substance: HEPARIN SODIUM
     Indication: CYSTITIS INTERSTITIAL
     Dosage: 1 ML, ATLEAST QD, INSTILLED THE SOLUTION VIA URINARY CATHETER INTO THE BLADDER, FREQ: AS NECESSARY
     Route: 066

REACTIONS (2)
  - No adverse event [Unknown]
  - Expired product administered [Recovered/Resolved]

NARRATIVE: CASE EVENT DATE: 20150101
